FAERS Safety Report 20136927 (Version 2)
Quarter: 2021Q4

REPORT INFORMATION
  Report Type: Spontaneous
  Country: GB (occurrence: GB)
  Receive Date: 20211201
  Receipt Date: 20211213
  Transmission Date: 20220303
  Serious: Yes (Hospitalization)
  Sender: FDA-Public Use
  Company Number: GB-GE HEALTHCARE-2021CSU005850

PATIENT

DRUGS (3)
  1. OMNIPAQUE [Suspect]
     Active Substance: IOHEXOL
     Indication: Mammogram
     Dosage: 90 ML, SINGLE
     Route: 040
     Dates: start: 20210514, end: 20210514
  2. OMNIPAQUE [Suspect]
     Active Substance: IOHEXOL
     Indication: Breast cancer
  3. SALINE [Concomitant]
     Active Substance: SODIUM CHLORIDE
     Dosage: 5 ML
     Dates: start: 20210514, end: 20210514

REACTIONS (1)
  - Contrast media allergy [Recovered/Resolved]

NARRATIVE: CASE EVENT DATE: 20210514
